FAERS Safety Report 7540127-9 (Version None)
Quarter: 2011Q2

REPORT INFORMATION
  Report Type: 
  Country: None (occurrence: None)
  Receive Date: 20110603
  Receipt Date: 20110512
  Transmission Date: 20111010
  Serious: Yes (Hospitalization)
  Sender: FDA-Public Use
  Company Number: 20110390

PATIENT
  Age: 58 Year
  Sex: Female
  Weight: 68.0396 kg

DRUGS (1)
  1. SODIUM ACETATE [Suspect]
     Indication: PARENTERAL NUTRITION
     Dosage: 178 MILLIEQUIVALENTS

REACTIONS (14)
  - PAIN [None]
  - ASTHENIA [None]
  - UNDERDOSE [None]
  - ARTHRALGIA [None]
  - BLOOD ALKALINE PHOSPHATASE INCREASED [None]
  - PRURITUS GENERALISED [None]
  - HAEMOGLOBIN DECREASED [None]
  - BLOOD CALCIUM DECREASED [None]
  - RENAL FAILURE [None]
  - ASPARTATE AMINOTRANSFERASE INCREASED [None]
  - HAEMATOCRIT DECREASED [None]
  - ALANINE AMINOTRANSFERASE INCREASED [None]
  - GAIT DISTURBANCE [None]
  - PRURITUS [None]
